FAERS Safety Report 5206987-1 (Version None)
Quarter: 2007Q1

REPORT INFORMATION
  Report Type: 
  Country: None (occurrence: None)
  Receive Date: 20070108
  Receipt Date: 20070108
  Transmission Date: 20070707
  Serious: Yes (Other)
  Sender: FDA-Public Use
  Company Number: None

PATIENT
  Age: 82 Year
  Sex: Female
  Weight: 50 kg

DRUGS (2)
  1. VECTIBIX [Suspect]
     Indication: COLON CANCER
     Dosage: 300 MG Q14 DAYS IV DRIP; 1 DAY - FIRST TIME INFUSED
     Route: 041
  2. VECTIBIX [Suspect]
     Indication: HEPATIC NEOPLASM MALIGNANT
     Dosage: 300 MG Q14 DAYS IV DRIP; 1 DAY - FIRST TIME INFUSED
     Route: 041

REACTIONS (1)
  - BRONCHOSPASM [None]
